FAERS Safety Report 24131472 (Version 1)
Quarter: 2024Q3

REPORT INFORMATION
  Report Type: Report from Study
  Country: BE (occurrence: BE)
  Receive Date: 20240724
  Receipt Date: 20240724
  Transmission Date: 20241017
  Serious: Yes (Other)
  Sender: AUROBINDO
  Company Number: BE-AUROBINDO-AUR-APL-2024-036446

PATIENT
  Age: 61 Year
  Sex: Male
  Weight: 81.3 kg

DRUGS (8)
  1. PIPERACILLIN AND TAZOBACTAM [Suspect]
     Active Substance: PIPERACILLIN SODIUM\TAZOBACTAM SODIUM
     Indication: Serratia infection
     Dosage: 4 GRAM, FOUR TIMES/DAY (DAY 6)
     Route: 065
  2. PIPERACILLIN AND TAZOBACTAM [Suspect]
     Active Substance: PIPERACILLIN SODIUM\TAZOBACTAM SODIUM
     Indication: Pneumonia
  3. MEROPENEM [Suspect]
     Active Substance: MEROPENEM
     Indication: Bacteraemia
     Dosage: UNK
     Route: 065
  4. AMPHOTERICIN B [Suspect]
     Active Substance: AMPHOTERICIN B
     Indication: COVID-19
     Dosage: 3 MILLIGRAM/KILOGRAM, ONCE A DAY(TWO DAYS LATER DUE TO RESISTANCE TO ISAVUCONAZOLE (I.E., MINIMALLY
     Route: 065
  5. AMPHOTERICIN B [Suspect]
     Active Substance: AMPHOTERICIN B
     Indication: Bronchopulmonary aspergillosis
  6. ISAVUCONAZOLE [Suspect]
     Active Substance: ISAVUCONAZOLE
     Indication: COVID-19
     Dosage: 200 MILLIGRAM, 3 TIMES A DAY (LOADING DOSE)
     Route: 042
  7. ISAVUCONAZOLE [Suspect]
     Active Substance: ISAVUCONAZOLE
     Indication: Bronchopulmonary aspergillosis
     Dosage: 200 MILLIGRAM, ONCE A DAY (MAINTENANCE DOSE)
     Route: 042
  8. ISAVUCONAZOLE [Suspect]
     Active Substance: ISAVUCONAZOLE
     Dosage: 300 MILLIGRAM, ONCE A DAY (MAINTENANCE DOSE WAS INCREASED TO 300 MG Q24H ON THE SIXTH DAY OF TREATME
     Route: 042

REACTIONS (1)
  - Drug ineffective [Unknown]
